FAERS Safety Report 16793807 (Version 2)
Quarter: 2019Q3

REPORT INFORMATION
  Report Type: Report from Study
  Country: US (occurrence: US)
  Receive Date: 20190911
  Receipt Date: 20190913
  Transmission Date: 20191005
  Serious: Yes (Other)
  Sender: FDA-Public Use
  Company Number: US-SA-2018SA145546

PATIENT
  Age: 49 Year
  Sex: Female

DRUGS (3)
  1. THIAMAZOLE [Suspect]
     Active Substance: METHIMAZOLE
     Dosage: UNK, UNK
     Route: 065
     Dates: start: 2019
  2. ALEMTUZUMAB [Suspect]
     Active Substance: ALEMTUZUMAB
     Indication: MULTIPLE SCLEROSIS
     Dosage: 12 MG, QD
     Route: 041
     Dates: start: 20161024, end: 20161026
  3. ALEMTUZUMAB [Suspect]
     Active Substance: ALEMTUZUMAB
     Dosage: UNK
     Route: 041
     Dates: start: 201510, end: 201510

REACTIONS (5)
  - Cytopenia [Unknown]
  - Thyroid function test abnormal [Unknown]
  - White blood cell count decreased [Unknown]
  - Autoimmune disorder [Unknown]
  - Neutropenia [Unknown]

NARRATIVE: CASE EVENT DATE: 201909
